FAERS Safety Report 19424464 (Version 1)
Quarter: 2021Q2

REPORT INFORMATION
  Report Type: Spontaneous
  Country: US (occurrence: US)
  Receive Date: 20210616
  Receipt Date: 20210616
  Transmission Date: 20210717
  Serious: No
  Sender: FDA-Public Use
  Company Number: US-SK LIFE SCIENCE, INC-SKPVG-2021-000398

PATIENT

DRUGS (50)
  1. PROBIOTIC                          /06395501/ [Concomitant]
     Active Substance: BIFIDOBACTERIUM ANIMALIS LACTIS
     Dosage: 1 CAPSULE AT 8.30 PM
     Route: 065
  2. ROBINUL [Concomitant]
     Active Substance: GLYCOPYRROLATE
     Dosage: 1 MILLIGRAM, 2 TABLETS AT 1.30 PM
     Route: 065
  3. CALCIUM + VIT D [Concomitant]
     Active Substance: CALCIUM\VITAMIN D
     Indication: PRODUCT USED FOR UNKNOWN INDICATION
     Dosage: 1.5 CALCIUM TABS 500 MG/400IU TAB VITAMIN D AT 7.30 AM
     Route: 065
  4. XCOPRI [Suspect]
     Active Substance: CENOBAMATE
     Indication: SEIZURE
     Dosage: 50 MILLIGRAM, BID
     Route: 048
     Dates: start: 20210206, end: 20210311
  5. DIASTAT                            /00017001/ [Concomitant]
     Indication: LENNOX-GASTAUT SYNDROME
     Dosage: 10 MILLIGRAM, ACUDIAL
     Route: 065
  6. CLORAZEPATE [Concomitant]
     Active Substance: CLORAZEPATE DIPOTASSIUM
     Dosage: 3.75 MILLIGRAM, 1 TABLET AT 8.00 PM
     Route: 065
  7. POTASSIUM CITRATE. [Concomitant]
     Active Substance: POTASSIUM CITRATE
     Dosage: 30 MILLILITER, MIXED WITH APPX HALF CUP WATER OR FORMULA AT 8.30 PM
     Route: 065
  8. HYDROCHLOROTHIAZIDE. [Concomitant]
     Active Substance: HYDROCHLOROTHIAZIDE
     Dosage: 12.5 MILLIGRAM, 1 TAB AT 8.30 PM
     Route: 065
  9. SENNA                              /00142201/ [Concomitant]
     Active Substance: SENNA LEAF
     Indication: PRODUCT USED FOR UNKNOWN INDICATION
     Dosage: 8 TAB. 8.6 MG EACH AT 8.30 PM
     Route: 065
  10. BISCOLAX [Concomitant]
     Active Substance: BISACODYL
     Indication: PRODUCT USED FOR UNKNOWN INDICATION
     Dosage: 10 MILLIGRAM, QD, 1 SUPPOSITORY AT 8.30 PM
     Route: 065
  11. SULFAMETH/TRIMETH [Concomitant]
     Active Substance: SULFAMETHOXAZOLE\TRIMETHOPRIM
     Dosage: 1 TAB, QHS
     Route: 065
     Dates: end: 20200320
  12. CIPRODEX                           /00697202/ [Concomitant]
     Indication: PRODUCT USED FOR UNKNOWN INDICATION
     Dosage: UNK UNK, PRN, EAR DROPS
     Route: 065
  13. DILANTIN [Suspect]
     Active Substance: PHENYTOIN
     Dosage: UNK, HALF DAILY
     Route: 065
     Dates: start: 20210301, end: 20210305
  14. KEPPRA [Suspect]
     Active Substance: LEVETIRACETAM
     Indication: SEIZURE
     Dosage: 1000 MILLIGRAM 1.5 TABLETS AT 7.30 AM
     Route: 065
     Dates: start: 20190815
  15. KEPPRA [Suspect]
     Active Substance: LEVETIRACETAM
     Dosage: 1000 MILLIGRAM 2 TABLETS AT 8 00 PM
     Route: 065
  16. EPIPEN [Concomitant]
     Active Substance: EPINEPHRINE
     Indication: LENNOX-GASTAUT SYNDROME
     Dosage: 0.15 UNK, JR
     Route: 065
  17. CLONAZEPAM. [Concomitant]
     Active Substance: CLONAZEPAM
     Indication: LENNOX-GASTAUT SYNDROME
     Dosage: 0.5 MILLIGRAM, PRN, TAB
     Route: 065
  18. ALINIA [Concomitant]
     Active Substance: NITAZOXANIDE
     Dosage: 500 MILLIGRAM, 1 TAB, 2 WKS ON 2 WKS OFF AT 8.30 PM
     Route: 065
  19. NITROFURANTOIN. [Concomitant]
     Active Substance: NITROFURANTOIN
     Indication: PRODUCT USED FOR UNKNOWN INDICATION
     Dosage: 100 MILLIGRAM, QD, MCR
     Route: 065
     Dates: end: 20210101
  20. BRIVIACT [Concomitant]
     Active Substance: BRIVARACETAM
     Indication: PRODUCT USED FOR UNKNOWN INDICATION
     Dosage: UNK
     Route: 065
     Dates: start: 20190815, end: 20190905
  21. CIPROFLOXACIN. [Concomitant]
     Active Substance: CIPROFLOXACIN
     Indication: URINARY TRACT INFECTION
     Dosage: UNK, 10 DAY COURSE
     Route: 065
     Dates: start: 202001
  22. CLARITIN [Concomitant]
     Active Substance: LORATADINE
     Indication: PRODUCT USED FOR UNKNOWN INDICATION
     Dosage: 10 MILLIGRAM, PRN
     Route: 065
  23. CIPROFLOXACIN. [Concomitant]
     Active Substance: CIPROFLOXACIN
     Dosage: 500 MILLIGRAM, BID
     Route: 065
     Dates: start: 20200309, end: 20200316
  24. DILANTIN [Suspect]
     Active Substance: PHENYTOIN
     Dosage: 50 MILLIGRAM. 2,5 TABD AT 8.00PM
     Route: 065
  25. ROBINUL [Concomitant]
     Active Substance: GLYCOPYRROLATE
     Indication: PRODUCT USED FOR UNKNOWN INDICATION
     Dosage: 1 MILLIGRAM, 2 TABLETS AT 7.30 AM
     Route: 065
  26. POTASSIUM CITRATE. [Concomitant]
     Active Substance: POTASSIUM CITRATE
     Indication: PRODUCT USED FOR UNKNOWN INDICATION
     Dosage: 30 MILLILITER, MIXED WITH APPX HALF CUP WATER OR FORMULA AT 7.30 AM
     Route: 065
  27. ALINIA [Concomitant]
     Active Substance: NITAZOXANIDE
     Indication: PRODUCT USED FOR UNKNOWN INDICATION
     Dosage: 500 MILLIGRAM, 1 TAB, 2 WKS ON 2 WKS OFF AT 7.30 AM
     Route: 065
  28. NASONEX [Concomitant]
     Active Substance: MOMETASONE FUROATE
     Indication: PRODUCT USED FOR UNKNOWN INDICATION
     Dosage: 50 MICROGRAM, 1 SPRAY IN EACH NOSTRIL
     Route: 045
  29. AMOXICILLIN. [Concomitant]
     Active Substance: AMOXICILLIN
     Indication: SINUSITIS
     Dosage: 10 MILLIGRAM, 400MG 5ML
     Route: 065
     Dates: start: 20190814, end: 20190824
  30. KEPPRA [Suspect]
     Active Substance: LEVETIRACETAM
     Dosage: 1000 MILLIGRAM, BID
     Dates: start: 20210303, end: 20210305
  31. BACLOFEN. [Concomitant]
     Active Substance: BACLOFEN
     Indication: PRODUCT USED FOR UNKNOWN INDICATION
     Dosage: 10 MILLIGRAM, 1 TABLET AT 7.30 AM
     Route: 065
  32. PREVACID [Concomitant]
     Active Substance: LANSOPRAZOLE
     Indication: PRODUCT USED FOR UNKNOWN INDICATION
     Dosage: 15 MILLIGRAM, 1 SOLU TAB, CRUSHED WITH OTHER MEDS AT 7.30 AM
     Route: 065
  33. VITAMIN B6 [Concomitant]
     Active Substance: PYRIDOXINE HYDROCHLORIDE
     Indication: PRODUCT USED FOR UNKNOWN INDICATION
     Dosage: 100 MILLIGRAM, 1 AT 7.30 AM
     Route: 065
  34. ALBUTEROL                          /00139501/ [Concomitant]
     Active Substance: ALBUTEROL
     Indication: PRODUCT USED FOR UNKNOWN INDICATION
     Dosage: 2 UNK, PRN, PUFFS
  35. ZINC. [Concomitant]
     Active Substance: ZINC
     Indication: SPINAL COLUMN INJURY
     Dosage: UNK, PRN, SENSICARE PROTECTIVE BARRIER CREAM
     Route: 065
  36. PROBIOTIC                          /06395501/ [Concomitant]
     Active Substance: BIFIDOBACTERIUM ANIMALIS LACTIS
     Indication: PRODUCT USED FOR UNKNOWN INDICATION
     Dosage: 1 CAPSULE AT 7.30 AM
     Route: 065
  37. HYDROCHLOROTHIAZIDE. [Concomitant]
     Active Substance: HYDROCHLOROTHIAZIDE
     Indication: PRODUCT USED FOR UNKNOWN INDICATION
     Dosage: 12.5 MILLIGRAM, 1 TAB AT 7.30 AM
     Route: 065
  38. SULFAMETH/TRIMETH [Concomitant]
     Active Substance: SULFAMETHOXAZOLE\TRIMETHOPRIM
     Indication: PROPHYLAXIS
     Dosage: 1 TAB, 400 TO 80 MG AT 8.30 PM
     Route: 065
     Dates: end: 20170920
  39. FYCOMPA [Concomitant]
     Active Substance: PERAMPANEL
     Indication: PRODUCT USED FOR UNKNOWN INDICATION
     Dosage: UNK
     Route: 065
     Dates: start: 20190918
  40. PROCTOSOL [Concomitant]
     Indication: HAEMORRHOIDS
     Dosage: UNK, BID, CREAM
     Route: 061
     Dates: start: 20191209
  41. DILANTIN [Suspect]
     Active Substance: PHENYTOIN
     Indication: SEIZURE
     Dosage: 50 MILLIGRAM, 2 TABLETS AT 7.30 AM
     Route: 065
  42. DILANTIN [Suspect]
     Active Substance: PHENYTOIN
     Dosage: 50 MILLIGRAM, 2 TABS AT 1.30 PM
     Route: 065
  43. BACLOFEN. [Concomitant]
     Active Substance: BACLOFEN
     Dosage: 10 MILLIGRAM, 1 TABLET AT 1.30 PM
     Route: 065
  44. BACLOFEN. [Concomitant]
     Active Substance: BACLOFEN
     Dosage: 10 MILLIGRAM, 3 TABLETS AT 8.30 PM
     Route: 065
  45. CLORAZEPATE [Concomitant]
     Active Substance: CLORAZEPATE DIPOTASSIUM
     Indication: SEIZURE
     Dosage: 3.75 MILLIGRAM, 1 TABLET AT 7.30 AM
     Route: 065
  46. PROBIOTIC                          /06395501/ [Concomitant]
     Active Substance: BIFIDOBACTERIUM ANIMALIS LACTIS
     Dosage: 1 CAPSULE AT 1.30 PM
     Route: 065
  47. ROBINUL [Concomitant]
     Active Substance: GLYCOPYRROLATE
     Dosage: 1 MILLIGRAM, 2 TABLETS AT 8.30 PM
     Route: 065
  48. CALCIUM + VIT D [Concomitant]
     Active Substance: CALCIUM\VITAMIN D
     Dosage: 1.5 CALCIUM TABS 500 MG/400IU TAB VITAMIN D AT 1.30 PM
     Route: 065
  49. CLORAZEPATE [Concomitant]
     Active Substance: CLORAZEPATE DIPOTASSIUM
     Dosage: 3.75 MILLIGRAM, 1 TABLET AT 1.30 PM
     Route: 065
  50. PREVACID [Concomitant]
     Active Substance: LANSOPRAZOLE
     Dosage: 15 MILLIGRAM, 1 SOLU TAB, CRUSHED WITH OTHER MEDS AT 8.30 PM
     Route: 065

REACTIONS (1)
  - Seizure [Recovered/Resolved]

NARRATIVE: CASE EVENT DATE: 20210303
